FAERS Safety Report 22344383 (Version 1)
Quarter: 2023Q2

REPORT INFORMATION
  Report Type: Spontaneous
  Country: CN (occurrence: CN)
  Receive Date: 20230519
  Receipt Date: 20230519
  Transmission Date: 20230721
  Serious: Yes (Life-Threatening)
  Sender: FDA-Public Use
  Company Number: CN-009507513-2305CHN003894

PATIENT
  Age: 51 Year
  Sex: Male

DRUGS (2)
  1. NOXAFIL [Suspect]
     Active Substance: POSACONAZOLE
     Indication: Antifungal prophylaxis
     Dosage: 5 ML, TID
     Route: 048
     Dates: start: 20230225, end: 20230313
  2. NUZYRA [Suspect]
     Active Substance: OMADACYCLINE
     Indication: Acute myeloid leukaemia
     Dosage: 0.1 G, QD
     Route: 041
     Dates: start: 20230313, end: 20230321

REACTIONS (1)
  - Hepatic function abnormal [Unknown]

NARRATIVE: CASE EVENT DATE: 20230303
